FAERS Safety Report 7774263-9 (Version None)
Quarter: 2011Q3

REPORT INFORMATION
  Report Type: 
  Country: None (occurrence: None)
  Receive Date: 20110923
  Receipt Date: 20110920
  Transmission Date: 20111222
  Serious: No
  Sender: FDA-Public Use
  Company Number: US-TEVA-301972USA

PATIENT
  Sex: Female
  Weight: 70.37 kg

DRUGS (3)
  1. PLAN B ONE-STEP [Suspect]
     Indication: POST COITAL CONTRACEPTION
     Dosage: 1.5 MILLIGRAM;
     Route: 048
     Dates: start: 20110916, end: 20110916
  2. WELLBUTRIN [Concomitant]
     Indication: ANXIETY
  3. WELLBUTRIN [Concomitant]
     Indication: DEPRESSION
     Dosage: 300 MILLIGRAM;
     Route: 048

REACTIONS (2)
  - PELVIC PAIN [None]
  - FATIGUE [None]
